FAERS Safety Report 21270696 (Version 1)
Quarter: 2022Q3

REPORT INFORMATION
  Report Type: Spontaneous
  Country: NL (occurrence: NL)
  Receive Date: 20220830
  Receipt Date: 20220830
  Transmission Date: 20221027
  Serious: Yes (Other)
  Sender: FDA-Public Use
  Company Number: None

PATIENT
  Age: 83 Year
  Sex: Male
  Weight: 54 kg

DRUGS (3)
  1. TAMSULOSIN [Suspect]
     Active Substance: TAMSULOSIN
     Indication: Micturition disorder
     Dosage: .4 MILLIGRAM DAILY; 1X A DAY, TAMSULOSINE CAPSULE MGA 0.4MG / BRAND NAME NOT SPECIFIED ,  DURATION :
     Route: 065
     Dates: start: 20220803, end: 20220808
  2. CARBASPIRIN CALCIUM [Concomitant]
     Active Substance: CARBASPIRIN CALCIUM
     Indication: Product used for unknown indication
     Dosage: STRENGTH  : 38MG , BRAND NAME NOT SPECIFIED , THERAPY START DATE : ASKU, THERAPY END DATE : ASKU
  3. PLAVIX [Concomitant]
     Active Substance: CLOPIDOGREL BISULFATE
     Indication: Product used for unknown indication
     Dosage: 75 MG (MILLIGRAM) , STRENGTH  : 75 MG , THERAPY START DATE : ASKU, THERAPY END DATE : ASKU

REACTIONS (1)
  - Clonic convulsion [Recovered/Resolved]

NARRATIVE: CASE EVENT DATE: 20220807
